FAERS Safety Report 6318752-2 (Version None)
Quarter: 2009Q3

REPORT INFORMATION
  Report Type: 
  Country: None (occurrence: None)
  Receive Date: 20090821
  Receipt Date: 20090818
  Transmission Date: 20100115
  Serious: Yes (Hospitalization)
  Sender: FDA-Public Use
  Company Number: US-GENENTECH-288911

PATIENT
  Sex: Male

DRUGS (1)
  1. XOLAIR [Suspect]
     Indication: ASTHMA
     Dosage: 3 UNK, Q2W
     Route: 058
     Dates: start: 20090405

REACTIONS (3)
  - ANAPHYLACTIC REACTION [None]
  - DYSARTHRIA [None]
  - PNEUMONIA [None]
